FAERS Safety Report 9699091 (Version 7)
Quarter: 2014Q2

REPORT INFORMATION
  Report Type: Report from Study
  Country: AU (occurrence: AU)
  Receive Date: 20131120
  Receipt Date: 20140415
  Transmission Date: 20141212
  Serious: Yes (Death, Hospitalization)
  Sender: FDA-Public Use
  Company Number: AU-ROCHE-1262767

PATIENT
  Age: 82 Year
  Sex: Female
  Weight: 70 kg

DRUGS (13)
  1. ACTEMRA [Suspect]
     Indication: RHEUMATOID ARTHRITIS
     Route: 042
     Dates: start: 20120416
  2. ACTEMRA [Suspect]
     Route: 042
  3. AMIODARONE HYDROCHLORIDE [Concomitant]
     Route: 048
  4. FOLIC ACID [Concomitant]
     Route: 048
  5. NEO-B12 [Concomitant]
     Route: 065
  6. OXYBUTYNIN HYDROCHLORIDE [Concomitant]
     Route: 048
  7. PANADOL OSTEO [Concomitant]
     Route: 065
  8. PREDNISOLONE [Concomitant]
     Route: 048
  9. SPIRIVA [Concomitant]
     Route: 055
  10. VENTOLIN [Concomitant]
     Route: 055
  11. ONBREZ [Concomitant]
     Dosage: O2, 2L/MIN OVERNIGHT
     Route: 065
  12. CIPROFLOXACIN [Concomitant]
     Indication: RESPIRATORY TRACT CONGESTION
     Route: 048
  13. OVESTIN [Concomitant]
     Dosage: 1 MG/G
     Route: 067

REACTIONS (15)
  - Death [Fatal]
  - Lung disorder [Recovering/Resolving]
  - Pneumonia [Recovered/Resolved]
  - Fall [Recovering/Resolving]
  - Limb injury [Recovering/Resolving]
  - Joint injury [Recovering/Resolving]
  - Dyspnoea [Not Recovered/Not Resolved]
  - Sputum increased [Not Recovered/Not Resolved]
  - Haematemesis [Recovered/Resolved]
  - Joint swelling [Not Recovered/Not Resolved]
  - Arthralgia [Not Recovered/Not Resolved]
  - Epistaxis [Unknown]
  - Productive cough [Not Recovered/Not Resolved]
  - Solar lentigo [Not Recovered/Not Resolved]
  - Lung disorder [Not Recovered/Not Resolved]
